FAERS Safety Report 6128945-5 (Version None)
Quarter: 2009Q1

REPORT INFORMATION
  Report Type: 
  Country: None (occurrence: None)
  Receive Date: 20090324
  Receipt Date: 20090312
  Transmission Date: 20090719
  Serious: Yes (Other)
  Sender: FDA-Public Use
  Company Number: PHHY2009CA09295

PATIENT
  Sex: Female

DRUGS (1)
  1. CLOZARIL [Suspect]
     Dosage: 150 MG
     Dates: start: 19980407, end: 20090302

REACTIONS (3)
  - CONDITION AGGRAVATED [None]
  - OBESITY [None]
  - WEIGHT INCREASED [None]
